FAERS Safety Report 10060711 (Version 1)
Quarter: 2014Q2

REPORT INFORMATION
  Report Type: Spontaneous
  Country: US (occurrence: US)
  Receive Date: 20140404
  Receipt Date: 20140404
  Transmission Date: 20141212
  Serious: Yes (Other)
  Sender: FDA-Public Use
  Company Number: US-ABBVIE-14P-163-1217761-00

PATIENT
  Sex: Female
  Weight: 86.26 kg

DRUGS (3)
  1. SYNTHROID [Suspect]
     Indication: THYROID HORMONE REPLACEMENT THERAPY
  2. SYNTHROID [Suspect]
     Dates: start: 201309
  3. ENALAPRIL [Concomitant]
     Indication: HYPERTENSION

REACTIONS (8)
  - Uterine leiomyoma [Recovered/Resolved]
  - Vaginal haemorrhage [Recovered/Resolved]
  - Abdominal pain [Recovered/Resolved]
  - Dysmenorrhoea [Recovered/Resolved]
  - Menorrhagia [Recovered/Resolved]
  - Dysmenorrhoea [Recovered/Resolved]
  - Weight increased [Recovered/Resolved]
  - Scar [Recovered/Resolved]
